FAERS Safety Report 19412580 (Version 1)
Quarter: 2021Q2

REPORT INFORMATION
  Report Type: Spontaneous
  Country: PL (occurrence: PL)
  Receive Date: 20210614
  Receipt Date: 20210614
  Transmission Date: 20210717
  Serious: Yes (Other)
  Sender: FDA-Public Use
  Company Number: PL-ACCORD-227761

PATIENT
  Age: 64 Year
  Sex: Female
  Weight: 67 kg

DRUGS (2)
  1. ETOPOSID EBEWE [Suspect]
     Active Substance: ETOPOSIDE
     Indication: NEOPLASM MALIGNANT
     Route: 042
     Dates: start: 20180320
  2. CISPLATIN ACCORD [Suspect]
     Active Substance: CISPLATIN
     Indication: NEOPLASM MALIGNANT
     Route: 042
     Dates: start: 20180320

REACTIONS (3)
  - Off label use [Unknown]
  - Asthenia [Recovering/Resolving]
  - Anaemia [Recovering/Resolving]

NARRATIVE: CASE EVENT DATE: 20180716
